FAERS Safety Report 8900554 (Version 1)
Quarter: 2012Q4

REPORT INFORMATION
  Report Type: 
  Country: JP (occurrence: JP)
  Receive Date: 20121109
  Receipt Date: 20121109
  Transmission Date: 20130627
  Serious: Yes (Death)
  Sender: FDA-Public Use
  Company Number: JP-AMGEN-JPNSP2012071007

PATIENT
  Age: 59 Year
  Sex: Female

DRUGS (4)
  1. VECTIBIX [Suspect]
     Indication: RECTAL CANCER
     Dosage: UNK UNK, q2wk
     Route: 041
  2. IRINOTECAN HYDROCHLORIDE [Concomitant]
     Dosage: UNK UNK, q2wk
     Route: 041
  3. FLUOROURACIL [Concomitant]
     Dosage: UNK UNK, q2wk
     Route: 042
  4. CALCIUM LEVOFOLINATE [Concomitant]
     Dosage: UNK UNK, q2wk
     Route: 041

REACTIONS (2)
  - Metastases to central nervous system [Fatal]
  - Skin disorder [Unknown]
